FAERS Safety Report 9179343 (Version 1)
Quarter: 2012Q4

REPORT INFORMATION
  Report Type: 
  Country: US (occurrence: US)
  Receive Date: 20121029
  Receipt Date: 20121029
  Transmission Date: 20130627
  Serious: No
  Sender: FDA-Public Use
  Company Number: US-AMGEN-USASP2012055537

PATIENT
  Age: 53 Year
  Sex: Female
  Weight: 102.95 kg

DRUGS (10)
  1. ENBREL [Suspect]
     Indication: PRODUCT USED FOR UNKNOWN INDICATION
     Dosage: 50 mg, qwk
     Route: 058
  2. METHOTREXATE [Concomitant]
     Dosage: 2.5 mg, UNK
  3. BENTYL [Concomitant]
     Dosage: 10 mg, UNK
  4. OMEPRAZOLE [Concomitant]
     Dosage: 10 mg, UNK
  5. SIMVASTATIN [Concomitant]
     Dosage: 5 mg, UNK
  6. METOPROLOL [Concomitant]
     Dosage: 25 mg, UNK
  7. PREDNISONE [Concomitant]
     Dosage: 10 mg, UNK
  8. MULTIVITAMINS, PLAIN [Concomitant]
     Dosage: UNK
  9. DICLOFENAC [Concomitant]
     Dosage: 25 mg, UNK
  10. FOLIC ACID [Concomitant]

REACTIONS (2)
  - Chest pain [Unknown]
  - Pain in extremity [Unknown]
